FAERS Safety Report 22316765 (Version 5)
Quarter: 2023Q2

REPORT INFORMATION
  Report Type: Spontaneous
  Country: US (occurrence: US)
  Receive Date: 20230513
  Receipt Date: 20230609
  Transmission Date: 20230721
  Serious: No
  Sender: FDA-Public Use
  Company Number: US-UNITED THERAPEUTICS-UNT-2023-013065

PATIENT
  Age: 35 Year
  Sex: Female
  Weight: 127.44 kg

DRUGS (14)
  1. REMODULIN [Suspect]
     Active Substance: TREPROSTINIL
     Indication: Pulmonary arterial hypertension
     Dosage: 0.0021 ?G/KG (SELF-FILL CASSETTE WITH 3 ML AT THE PUMP RATE OF 46 MCL PER HOUR), CONTINUING
     Route: 058
  2. REMODULIN [Suspect]
     Active Substance: TREPROSTINIL
     Dosage: UNK (SELF-FILL CASSETTE WITH 1.7 ML AT THE PUMP RATE OF 16 MCL PER HOUR), CONTINUING
     Route: 058
  3. REMODULIN [Suspect]
     Active Substance: TREPROSTINIL
     Dosage: 0.0061 ?G/KG (SELF-FILL CASSETTE WITH 3 ML AT THE PUMP RATE OF 46 MCL PER HOUR), CONTINUING
     Route: 058
  4. REMODULIN [Suspect]
     Active Substance: TREPROSTINIL
     Dosage: UNK, CONTINUING
     Route: 058
     Dates: start: 20230424
  5. REMODULIN [Suspect]
     Active Substance: TREPROSTINIL
     Indication: Pulmonary arterial hypertension
     Dosage: 0.0161 ?G/KG (SELF FILL WITH 3 ML PER CASSETTE, RATE 48 MCL PER HOUR), CONTINUING
     Route: 058
     Dates: start: 20230525
  6. REMODULIN [Suspect]
     Active Substance: TREPROSTINIL
     Dosage: 0.0181 ?G/KG (SELF-FILL WITH 3 ML PER CASSETTE; PUMP RATE 55 MCL PER HOUR), CONTINUING
     Route: 058
  7. REMODULIN [Suspect]
     Active Substance: TREPROSTINIL
     Dosage: 0.0101 ?G/KG (SELF FILL WITH 2.7 ML PER CASSETTE, RATE 30 MCL PER HOUR), CONTINUING
     Route: 058
     Dates: start: 20230525
  8. REMODULIN [Suspect]
     Active Substance: TREPROSTINIL
     Dosage: UNK, CONTINUING
     Route: 058
  9. UPTRAVI [Suspect]
     Active Substance: SELEXIPAG
     Indication: Pulmonary hypertension
     Dosage: 800 ?G, BID
     Route: 048
  10. UPTRAVI [Suspect]
     Active Substance: SELEXIPAG
     Dosage: 200 ?G, BID
     Route: 048
  11. UPTRAVI [Suspect]
     Active Substance: SELEXIPAG
     Dosage: 600 MCG, BID
     Route: 065
     Dates: start: 20230525
  12. UPTRAVI [Suspect]
     Active Substance: SELEXIPAG
     Dosage: UNK
     Route: 065
  13. OPSUMIT [Concomitant]
     Active Substance: MACITENTAN
     Indication: Product used for unknown indication
     Route: 065
  14. TADALAFIL [Concomitant]
     Active Substance: TADALAFIL
     Indication: Product used for unknown indication
     Route: 065

REACTIONS (13)
  - Anxiety [Unknown]
  - Infusion site pain [Unknown]
  - Headache [Unknown]
  - Device infusion issue [Recovered/Resolved]
  - Infusion site warmth [Unknown]
  - Infusion site erythema [Unknown]
  - Infusion site haemorrhage [Unknown]
  - Fatigue [Unknown]
  - Asthenia [Unknown]
  - Pulmonary arterial pressure increased [Unknown]
  - Cough [Unknown]
  - Respiratory tract congestion [Unknown]
  - Device adhesion issue [Unknown]

NARRATIVE: CASE EVENT DATE: 20230501
